FAERS Safety Report 24836589 (Version 1)
Quarter: 2025Q1

REPORT INFORMATION
  Report Type: Spontaneous
  Country: US (occurrence: US)
  Receive Date: 20250113
  Receipt Date: 20250113
  Transmission Date: 20250409
  Serious: Yes (Hospitalization)
  Sender: MYLAN
  Company Number: US-MYLANLABS-2025M1001723

PATIENT
  Age: 20 Year
  Sex: Male

DRUGS (6)
  1. PREDNISONE [Suspect]
     Active Substance: PREDNISONE
     Indication: Colitis ulcerative
     Route: 048
  2. HEPARIN [Suspect]
     Active Substance: HEPARIN SODIUM
     Indication: Cerebrovascular accident prophylaxis
     Route: 065
  3. COLCHICINE [Concomitant]
     Active Substance: COLCHICINE
     Indication: Pericarditis
     Route: 065
  4. COLCHICINE [Concomitant]
     Active Substance: COLCHICINE
     Indication: Myocarditis
  5. IBUPROFEN [Concomitant]
     Active Substance: IBUPROFEN
     Indication: Pericarditis
     Route: 065
  6. IBUPROFEN [Concomitant]
     Active Substance: IBUPROFEN
     Indication: Myocarditis

REACTIONS (1)
  - Drug ineffective [Unknown]
